FAERS Safety Report 25384799 (Version 4)
Quarter: 2025Q3

REPORT INFORMATION
  Report Type: Spontaneous
  Country: PR (occurrence: PR)
  Receive Date: 20250602
  Receipt Date: 20250709
  Transmission Date: 20251021
  Serious: No
  Sender: PFIZER
  Company Number: PR-PFIZER INC-202500110587

PATIENT
  Age: 9 Year
  Sex: Female
  Weight: 24.95 kg

DRUGS (2)
  1. GENOTROPIN [Suspect]
     Active Substance: SOMATROPIN
     Indication: Turner^s syndrome
     Dosage: 1.2 MG, DAILY
     Dates: start: 20250518
  2. GENOTROPIN [Suspect]
     Active Substance: SOMATROPIN
     Indication: Body height decreased

REACTIONS (4)
  - Device leakage [Unknown]
  - Device mechanical issue [Unknown]
  - Wrong technique in device usage process [Unknown]
  - Drug dose omission by device [Unknown]

NARRATIVE: CASE EVENT DATE: 20250527
